FAERS Safety Report 6269525-0 (Version None)
Quarter: 2009Q3

REPORT INFORMATION
  Report Type: 
  Country: None (occurrence: None)
  Receive Date: 20090715
  Receipt Date: 20090316
  Transmission Date: 20100115
  Serious: No
  Sender: FDA-Public Use
  Company Number: US-TYCO HEALTHCARE/MALLINCKRODT-T200900684

PATIENT
  Age: 50 Year
  Sex: Male
  Weight: 72.562 kg

DRUGS (2)
  1. OXYCODONE HCL [Suspect]
     Indication: BACK PAIN
     Dosage: 60 MG, TID
     Route: 048
     Dates: start: 19990101
  2. METHADONE HCL [Concomitant]
     Indication: BACK PAIN
     Dosage: 20 MG, BID
     Route: 048

REACTIONS (3)
  - DRUG EFFECT DECREASED [None]
  - DYSARTHRIA [None]
  - INCORRECT DOSE ADMINISTERED [None]
